FAERS Safety Report 21106615 (Version 8)
Quarter: 2023Q2

REPORT INFORMATION
  Report Type: Report from Study
  Country: US (occurrence: US)
  Receive Date: 20220720
  Receipt Date: 20230623
  Transmission Date: 20230722
  Serious: No
  Sender: FDA-Public Use
  Company Number: US-NOVARTISTESTPH-NVSC2022US164431

PATIENT
  Age: 57 Year
  Sex: Female

DRUGS (2)
  1. COSENTYX [Suspect]
     Active Substance: SECUKINUMAB
     Indication: Psoriasis
     Dosage: 300 MG, (Q WEEK FOR FIVE WEEKS)
     Route: 058
     Dates: start: 20210604
  2. COSENTYX [Suspect]
     Active Substance: SECUKINUMAB
     Dosage: 300 MG, QMO (THEN Q FOUR WEEKS)
     Route: 058

REACTIONS (2)
  - Scar [Unknown]
  - Psoriasis [Unknown]

NARRATIVE: CASE EVENT DATE: 20220719
